FAERS Safety Report 25915669 (Version 3)
Quarter: 2025Q4

REPORT INFORMATION
  Report Type: Report from Study
  Country: US (occurrence: US)
  Receive Date: 20251013
  Receipt Date: 20251225
  Transmission Date: 20260117
  Serious: No
  Sender: ABBVIE
  Company Number: US-ABBVIE-6493031

PATIENT
  Age: 66 Year
  Sex: Female
  Weight: 62.142 kg

DRUGS (15)
  1. FOSCARBIDOPA\FOSLEVODOPA [Suspect]
     Active Substance: FOSCARBIDOPA\FOSLEVODOPA
     Indication: Parkinson^s disease
     Dosage: LOADING DOSE DRUG:?1.2 ML, CONTINUOUS RATE PUMP SETTING BASE?.49 ML/H?CONTINUOUS RATE PUMP SETTIN...
     Route: 058
     Dates: start: 20250506, end: 20250520
  2. FOSCARBIDOPA\FOSLEVODOPA [Suspect]
     Active Substance: FOSCARBIDOPA\FOSLEVODOPA
     Dosage: LOADING DOSE DRUG:?1.2 ML, CONTINUOUS RATE PUMP SETTING BASE?.51 ML/H?CONTINUOUS RATE PUMP SETTIN...
     Route: 058
     Dates: start: 20250520, end: 20250610
  3. FOSCARBIDOPA\FOSLEVODOPA [Suspect]
     Active Substance: FOSCARBIDOPA\FOSLEVODOPA
     Dosage: LOADING DOSE DRUG:?1.2 ML, CONTINUOUS RATE PUMP SETTING BASE?0.55 ML/H?CONTINUOUS RATE PUMP SETTI...
     Route: 058
     Dates: start: 20250610, end: 20250620
  4. FOSCARBIDOPA\FOSLEVODOPA [Suspect]
     Active Substance: FOSCARBIDOPA\FOSLEVODOPA
     Dosage: LOADING DOSE DRUG:?1.2 ML, CONTINUOUS RATE PUMP SETTING BASE?.59 ML/H?CONTINUOUS RATE PUMP SETTIN...
     Route: 058
     Dates: start: 20250620
  5. CYCLOSPORINE [Concomitant]
     Active Substance: CYCLOSPORINE
     Indication: Dry eye
     Dosage: TIME INTERVAL: AS NECESSARY: ROUTE: OPHTHALMIC
     Dates: start: 2023
  6. DESVENLAFAXINE [Concomitant]
     Active Substance: DESVENLAFAXINE
     Indication: Depression
     Route: 048
     Dates: start: 2022
  7. DOXEPIN [Concomitant]
     Active Substance: DOXEPIN
     Indication: Insomnia
     Dosage: TIME INTERVAL: AS NECESSARY
     Route: 048
     Dates: start: 20231003
  8. MELATONIN [Concomitant]
     Active Substance: MELATONIN
     Indication: Insomnia
     Dosage: TIME INTERVAL: AS NECESSARY
     Route: 048
     Dates: start: 20191024
  9. METAXALONE [Concomitant]
     Active Substance: METAXALONE
     Indication: Muscle spasms
     Route: 048
     Dates: start: 20240903
  10. NALTREXONE [Concomitant]
     Active Substance: NALTREXONE
     Indication: Arthritis
     Route: 048
     Dates: start: 20231003
  11. VITAMIN D3 [Concomitant]
     Active Substance: CHOLECALCIFEROL
     Indication: Vitamin D deficiency
     Route: 048
     Dates: start: 20201209
  12. MIRALAX [Concomitant]
     Active Substance: POLYETHYLENE GLYCOL 3350
     Indication: Constipation
     Dosage: TIME INTERVAL: AS NECESSARY
     Route: 048
     Dates: start: 2021
  13. FISH OIL [Concomitant]
     Active Substance: FISH OIL
     Indication: Supplementation therapy
     Dosage: 1 TABLET
     Route: 048
     Dates: start: 2020
  14. Magnesium citrate glycinate [Concomitant]
     Indication: Constipation
     Dosage: 1 TABLET
     Route: 048
     Dates: start: 2021
  15. SENNA [Concomitant]
     Active Substance: SENNOSIDES
     Indication: Constipation
     Dosage: TIME INTERVAL: AS NECESSARY
     Route: 048
     Dates: start: 2021

REACTIONS (1)
  - Fall [Recovered/Resolved]

NARRATIVE: CASE EVENT DATE: 20250920
